FAERS Safety Report 13512128 (Version 2)
Quarter: 2018Q2

REPORT INFORMATION
  Report Type: Spontaneous
  Country: US (occurrence: US)
  Receive Date: 20170504
  Receipt Date: 20180423
  Transmission Date: 20180711
  Serious: No
  Sender: FDA-Public Use
  Company Number: US-TEVA-738277ACC

PATIENT
  Age: 65 Year
  Sex: Female
  Weight: 67 kg

DRUGS (30)
  1. NICOTINIC ACID [Suspect]
     Active Substance: NIACIN
     Indication: SUPPLEMENTATION THERAPY
     Dosage: 500 MILLIGRAM DAILY;
     Route: 048
     Dates: start: 20161001, end: 20161108
  2. ALLOPURINOL. [Concomitant]
     Active Substance: ALLOPURINOL
  3. MAGNESIUM SULFATE. [Concomitant]
     Active Substance: MAGNESIUM SULFATE
  4. LORAZEPAM. [Concomitant]
     Active Substance: LORAZEPAM
  5. GABAPENTIN. [Concomitant]
     Active Substance: GABAPENTIN
  6. INSULIN SLIDE SCALE [Concomitant]
  7. REQUIP [Concomitant]
     Active Substance: ROPINIROLE HYDROCHLORIDE
  8. AMLODIPINE [Concomitant]
     Active Substance: AMLODIPINE BESYLATE
  9. FLUCONAZOLE. [Concomitant]
     Active Substance: FLUCONAZOLE
  10. BACTRIM [Concomitant]
     Active Substance: SULFAMETHOXAZOLE\TRIMETHOPRIM
  11. PROCHLORPERAZINE. [Concomitant]
     Active Substance: PROCHLORPERAZINE
  12. URSODIOL. [Concomitant]
     Active Substance: URSODIOL
  13. RASBURICASE [Concomitant]
     Active Substance: RASBURICASE
  14. SODIUM BICARBONATE. [Concomitant]
     Active Substance: SODIUM BICARBONATE
  15. ACETAMINOPHEN. [Concomitant]
     Active Substance: ACETAMINOPHEN
  16. ONDENSTRAN [Concomitant]
  17. MAGNESIUM OXIDE. [Concomitant]
     Active Substance: MAGNESIUM OXIDE
  18. NIACIN. [Concomitant]
     Active Substance: NIACIN
  19. PROPRANOLOL [Concomitant]
     Active Substance: PROPRANOLOL HYDROCHLORIDE
  20. LISINOPRIL. [Concomitant]
     Active Substance: LISINOPRIL
  21. OXYCODONE [Concomitant]
     Active Substance: OXYCODONE
  22. POTASSIUM CHLORIDE. [Concomitant]
     Active Substance: POTASSIUM CHLORIDE
  23. METFORMIN [Concomitant]
     Active Substance: METFORMIN HYDROCHLORIDE
  24. RANITIDINE. [Concomitant]
     Active Substance: RANITIDINE
  25. HYDROCODONE [Concomitant]
     Active Substance: HYDROCODONE
  26. INOTUZUMAB [Concomitant]
     Active Substance: INOTUZUMAB OZOGAMICIN
  27. NEUPOGEN [Concomitant]
     Active Substance: FILGRASTIM
  28. ATORVASTATIN [Concomitant]
     Active Substance: ATORVASTATIN
  29. LASIX [Concomitant]
     Active Substance: FUROSEMIDE
  30. IMODIUM [Concomitant]
     Active Substance: LOPERAMIDE HYDROCHLORIDE

REACTIONS (1)
  - Diarrhoea [Recovered/Resolved]

NARRATIVE: CASE EVENT DATE: 20161001
